FAERS Safety Report 12063367 (Version 1)
Quarter: 2016Q1

REPORT INFORMATION
  Report Type: Spontaneous
  Country: US (occurrence: US)
  Receive Date: 20160210
  Receipt Date: 20160210
  Transmission Date: 20160526
  Serious: No
  Sender: FDA-Public Use
  Company Number: US-SHIRE-US201601254

PATIENT
  Sex: Female
  Weight: 45.35 kg

DRUGS (1)
  1. LIALDA [Suspect]
     Active Substance: MESALAMINE
     Indication: DIARRHOEA
     Dosage: 4.8 G (FOUR 1.2 G TABLETS), 1X/DAY:QD (IN THE MORNING)
     Route: 048

REACTIONS (2)
  - No adverse event [Not Recovered/Not Resolved]
  - Product use issue [Not Recovered/Not Resolved]
